FAERS Safety Report 14169356 (Version 1)
Quarter: 2017Q4

REPORT INFORMATION
  Report Type: Spontaneous
  Country: ES (occurrence: ES)
  Receive Date: 20171107
  Receipt Date: 20171107
  Transmission Date: 20180321
  Serious: Yes (Other)
  Sender: FDA-Public Use
  Company Number: ES-ELI_LILLY_AND_COMPANY-ES201708008534

PATIENT
  Age: 78 Year
  Sex: Female
  Weight: 59 kg

DRUGS (11)
  1. XERISTAR (DULOXETINE) [Suspect]
     Active Substance: DULOXETINE HYDROCHLORIDE
     Dosage: 30 MG, OTHER
     Route: 065
     Dates: start: 201709
  2. BETMIGA [Concomitant]
     Active Substance: MIRABEGRON
     Indication: URINARY INCONTINENCE
     Dosage: 50 MG, DAILY
     Route: 065
  3. TRIPLE OMEGA 3 6 9 [Concomitant]
     Indication: OSTEOPOROSIS
     Dosage: 1 DF, DAILY
     Route: 065
  4. OMEGA FOR [Concomitant]
     Indication: OSTEOPOROSIS
     Dosage: 900 MG, DAILY
     Route: 065
  5. XERISTAR (DULOXETINE) [Suspect]
     Active Substance: DULOXETINE HYDROCHLORIDE
     Indication: ANXIETY
     Dosage: 30 MG, DAILY
     Route: 065
     Dates: start: 2014, end: 201705
  6. XERISTAR (DULOXETINE) [Suspect]
     Active Substance: DULOXETINE HYDROCHLORIDE
     Dosage: 30 MG, DAILY
     Route: 065
     Dates: start: 201706, end: 201709
  7. FORSTEO [Suspect]
     Active Substance: TERIPARATIDE
     Indication: OSTEOPOROSIS
     Dosage: 20 UG, DAILY
     Route: 058
     Dates: start: 20170808, end: 201710
  8. VESICARE [Concomitant]
     Active Substance: SOLIFENACIN SUCCINATE
     Indication: URINARY INCONTINENCE
     Dosage: 30 MG, DAILY
     Route: 065
  9. VITAMINA D [Concomitant]
     Indication: OSTEOPOROSIS
     Dosage: 1 DF, 2/M
     Route: 065
  10. OMEPRAZOL                          /00661201/ [Concomitant]
     Active Substance: OMEPRAZOLE
     Indication: PRODUCT USED FOR UNKNOWN INDICATION
     Dosage: 1 DF, DAILY
     Route: 065
  11. ARMOLIPID PLUS [Concomitant]
     Active Substance: DIETARY SUPPLEMENT
     Indication: BLOOD CHOLESTEROL
     Dosage: 1 DF, DAILY
     Route: 065

REACTIONS (15)
  - Neck pain [Recovered/Resolved]
  - Bladder cyst [Not Recovered/Not Resolved]
  - Blood triglycerides increased [Unknown]
  - Pain [Not Recovered/Not Resolved]
  - Underdose [Unknown]
  - Dizziness [Unknown]
  - Vomiting [Recovered/Resolved]
  - Device malfunction [None]
  - Incorrect dose administered by device [None]
  - Spinal disorder [Unknown]
  - Malaise [Unknown]
  - Urinary tract infection [Not Recovered/Not Resolved]
  - Injection site pain [Unknown]
  - Musculoskeletal stiffness [Recovered/Resolved]
  - Intentional product misuse [Unknown]

NARRATIVE: CASE EVENT DATE: 201708
